FAERS Safety Report 23597681 (Version 2)
Quarter: 2025Q2

REPORT INFORMATION
  Report Type: Spontaneous
  Country: AU (occurrence: AU)
  Receive Date: 20240305
  Receipt Date: 20250416
  Transmission Date: 20250717
  Serious: Yes (Hospitalization, Other)
  Sender: Kenvue
  Company Number: AU-JNJFOC-20240309932

PATIENT

DRUGS (18)
  1. NICOTINE [Suspect]
     Active Substance: NICOTINE
     Indication: Tobacco user
     Dosage: NICOTINE 24 MG 1 DOSAGE FORM(S) DAILY (1 DOSAGE FORM(S) DAILY)
     Route: 065
  2. LOPERAMIDE HYDROCHLORIDE [Suspect]
     Active Substance: LOPERAMIDE HYDROCHLORIDE
     Indication: Prophylaxis
     Dosage: 2 MG 1 DOSAGE FORM(S) THREE TIMES A DAY DAILY
     Route: 065
  3. ACETAMINOPHEN [Suspect]
     Active Substance: ACETAMINOPHEN
     Indication: Umbilical hernia
     Dosage: 500 MG 2 DOSAGE FORM(S) FOUR TIMES A DAY DAILY
     Route: 065
  4. ACETAMINOPHEN [Suspect]
     Active Substance: ACETAMINOPHEN
     Indication: Pain
  5. VENTOLIN [Suspect]
     Active Substance: ALBUTEROL SULFATE
     Indication: Asthma
     Route: 065
  6. CICLESONIDE [Suspect]
     Active Substance: CICLESONIDE
     Indication: Asthma
     Dosage: 160 UG 1 PUFF(S) TWICE A DAY (2 PUFF(S) DAILY
     Route: 065
  7. PREDNISOLONE [Suspect]
     Active Substance: PREDNISOLONE
     Indication: Asthma
     Dosage: 25 MG 1 DOSAGE FORM(S) DAILY
     Route: 065
  8. CLOZAPINE [Suspect]
     Active Substance: CLOZAPINE
     Indication: Schizophrenia
     Dosage: 100 MG 2 DOSAGE FORM(S) TWICE A DAY DAILY
     Route: 065
  9. ATORVASTATIN [Suspect]
     Active Substance: ATORVASTATIN
     Indication: Hypercholesterolaemia
     Dosage: 10 MG 1 DOSAGE FORM(S) DAILY
     Route: 065
  10. CHOLESTYRAMINE [Suspect]
     Active Substance: CHOLESTYRAMINE
     Indication: Prophylaxis
     Dosage: 4 MG 1 DOSAGE FORM(S) TWICE A DAY DAILY
     Route: 065
  11. DOCUSATE SODIUM [Suspect]
     Active Substance: DOCUSATE SODIUM
     Indication: Constipation
     Route: 065
  12. ESOMEPRAZOLE [Suspect]
     Active Substance: ESOMEPRAZOLE
     Indication: Dyspepsia
     Dosage: 25 MG 1 DOSAGE FORM(S) DAILY
     Route: 065
  13. FENOFIBRATE [Suspect]
     Active Substance: FENOFIBRATE
     Indication: Prophylaxis
     Dosage: 145 MG 1 DOSAGE FORM(S) DAILY
     Route: 065
  14. FENOFIBRATE [Suspect]
     Active Substance: FENOFIBRATE
     Indication: Hypercholesterolaemia
  15. PREGABALIN [Suspect]
     Active Substance: PREGABALIN
     Indication: Prophylaxis
     Dosage: 150 MG 1 DOSAGE FORM(S) TWICE A DAY DAILY
     Route: 065
  16. CELECOXIB [Suspect]
     Active Substance: CELECOXIB
     Indication: Product used for unknown indication
     Route: 065
  17. OXYCODONE HYDROCHLORIDE [Suspect]
     Active Substance: OXYCODONE HYDROCHLORIDE
     Indication: Product used for unknown indication
     Route: 065
  18. LOPERAMIDE HYDROCHLORIDE [Suspect]
     Active Substance: LOPERAMIDE HYDROCHLORIDE
     Indication: Prophylaxis
     Dosage: 2 MG 1 DOSAGE FORM(S) THREE TIMES A DAY DAILY
     Route: 065

REACTIONS (11)
  - Dyspnoea [Unknown]
  - Hypokalaemia [Unknown]
  - Neutropenia [Unknown]
  - Constipation [Unknown]
  - Decreased appetite [Unknown]
  - Oxygen saturation decreased [Unknown]
  - Musculoskeletal chest pain [Unknown]
  - Wheezing [Unknown]
  - Cough [Unknown]
  - Headache [Unknown]
  - Oropharyngeal pain [Unknown]
